FAERS Safety Report 7971214-9 (Version None)
Quarter: 2011Q4

REPORT INFORMATION
  Report Type: 
  Country: None (occurrence: None)
  Receive Date: 20111212
  Receipt Date: 20111129
  Transmission Date: 20120403
  Serious: Yes (Other)
  Sender: FDA-Public Use
  Company Number: PHHY2011IT105949

PATIENT
  Age: 29 Year
  Sex: Female

DRUGS (6)
  1. METHYLPREDNISOLONE [Suspect]
     Indication: LIVER TRANSPLANT
     Dosage: 500 MG, UNK
     Route: 042
  2. BASILIXIMAB [Suspect]
     Indication: LIVER TRANSPLANT
     Dosage: 2 MG, UNK
     Route: 042
  3. DOXORUBICIN HCL [Concomitant]
     Dosage: 20 MG/M2, Q2 WEEKS
  4. METHYLPREDNISOLONE [Suspect]
     Dosage: 0.5 MG/KG, BID
  5. PREDNISONE TAB [Suspect]
     Indication: LIVER TRANSPLANT
     Dosage: 25 MG, UNK
  6. TACROLIMUS [Suspect]
     Indication: LIVER TRANSPLANT
     Dosage: UNK UKN, UNK

REACTIONS (13)
  - PYREXIA [None]
  - KAPOSI'S SARCOMA [None]
  - HUMAN HERPESVIRUS 8 INFECTION [None]
  - ASTHENIA [None]
  - ACUTE RESPIRATORY DISTRESS SYNDROME [None]
  - SINUS TACHYCARDIA [None]
  - ANAEMIA [None]
  - THROMBOCYTOPENIA [None]
  - LYMPHADENOPATHY [None]
  - GENERALISED OEDEMA [None]
  - RASH [None]
  - RASH MACULO-PAPULAR [None]
  - ANURIA [None]
